FAERS Safety Report 7531526-X (Version None)
Quarter: 2011Q2

REPORT INFORMATION
  Report Type: 
  Country: None (occurrence: None)
  Receive Date: 20110601
  Receipt Date: 20110516
  Transmission Date: 20111010
  Serious: Yes (Other)
  Sender: FDA-Public Use
  Company Number: 2011CP000080

PATIENT
  Sex: Male

DRUGS (1)
  1. ACETAMINOPHEN [Suspect]
     Indication: ORTHOPEDIC PROCEDURE
     Dosage: 1 GM;IV
     Route: 042

REACTIONS (4)
  - HYPERHIDROSIS [None]
  - SHOCK [None]
  - LEUKOPENIA [None]
  - JAUNDICE ACHOLURIC [None]
